FAERS Safety Report 15868248 (Version 1)
Quarter: 2019Q1

REPORT INFORMATION
  Report Type: Spontaneous
  Country: US (occurrence: US)
  Receive Date: 20190125
  Receipt Date: 20190125
  Transmission Date: 20190417
  Serious: Yes (Hospitalization)
  Sender: FDA-Public Use
  Company Number: None

PATIENT
  Age: 56 Year
  Sex: Female

DRUGS (26)
  1. TIZANIDINE. [Concomitant]
     Active Substance: TIZANIDINE
  2. TRAZODONE [Concomitant]
     Active Substance: TRAZODONE HYDROCHLORIDE
  3. METFORMIN [Concomitant]
     Active Substance: METFORMIN HYDROCHLORIDE
  4. CYANOCOBALAM [Concomitant]
     Active Substance: CYANOCOBALAMIN
  5. MONTELUKAST [Concomitant]
     Active Substance: MONTELUKAST SODIUM
  6. CYCLOBENZAPR [Concomitant]
     Active Substance: CYCLOBENZAPRINE
  7. HYDROCO/APAP [Concomitant]
     Active Substance: ACETAMINOPHEN\HYDROCODONE
  8. PRAVASTATIN. [Concomitant]
     Active Substance: PRAVASTATIN
  9. JANUVIA [Concomitant]
     Active Substance: SITAGLIPTIN PHOSPHATE
  10. HYDROMET [Concomitant]
     Active Substance: HOMATROPINE METHYLBROMIDE\HYDROCODONE BITARTRATE
  11. OXYCODONE [Concomitant]
     Active Substance: OXYCODONE
  12. PREDNISONE. [Concomitant]
     Active Substance: PREDNISONE
  13. PREMARIN VAG CRE [Concomitant]
  14. SYMBICORT [Concomitant]
     Active Substance: BUDESONIDE\FORMOTEROL FUMARATE DIHYDRATE
  15. MYCOPHENOLATE [Suspect]
     Active Substance: MYCOPHENOLIC ACID
     Indication: PRODUCT USED FOR UNKNOWN INDICATION
     Route: 048
     Dates: start: 20180614
  16. GABAPENTIN. [Concomitant]
     Active Substance: GABAPENTIN
  17. ONDANSETRON [Concomitant]
     Active Substance: ONDANSETRON
  18. KETOROLAC [Concomitant]
     Active Substance: KETOROLAC\KETOROLAC TROMETHAMINE
  19. OMEPRAZOLE. [Concomitant]
     Active Substance: OMEPRAZOLE
  20. GEMFIBROZIL. [Concomitant]
     Active Substance: GEMFIBROZIL
  21. IPRATROPIUM [Concomitant]
     Active Substance: IPRATROPIUM
  22. JARDIANCE [Concomitant]
     Active Substance: EMPAGLIFLOZIN
  23. VICTOZA [Concomitant]
     Active Substance: LIRAGLUTIDE
  24. LEVOTHYROXIN [Concomitant]
     Active Substance: LEVOTHYROXINE
  25. SERTRALINE [Concomitant]
     Active Substance: SERTRALINE HYDROCHLORIDE
  26. OXYBUTYNIN. [Concomitant]
     Active Substance: OXYBUTYNIN CHLORIDE

REACTIONS (2)
  - Spinal operation [None]
  - Therapy cessation [None]

NARRATIVE: CASE EVENT DATE: 20190103
